FAERS Safety Report 15347713 (Version 1)
Quarter: 2018Q3

REPORT INFORMATION
  Report Type: Spontaneous
  Country: DE (occurrence: DE)
  Receive Date: 20180904
  Receipt Date: 20180904
  Transmission Date: 20181010
  Serious: Yes (Hospitalization)
  Sender: FDA-Public Use
  Company Number: DE-NORTHSTAR HEALTHCARE HOLDINGS-DE-2018NSR000139

PATIENT
  Age: 47 Year
  Sex: Female

DRUGS (1)
  1. BACLOFEN. [Suspect]
     Active Substance: BACLOFEN
     Indication: ALCOHOLISM
     Dosage: 25 MG, X 8

REACTIONS (3)
  - Stress cardiomyopathy [Recovering/Resolving]
  - Delirium [Unknown]
  - Overdose [Unknown]
